FAERS Safety Report 25152757 (Version 2)
Quarter: 2025Q2

REPORT INFORMATION
  Report Type: Report from Study
  Country: US (occurrence: US)
  Receive Date: 20250403
  Receipt Date: 20250411
  Transmission Date: 20250717
  Serious: No
  Sender: ABBVIE
  Company Number: US-ABBVIE-6201513

PATIENT
  Age: 72 Year
  Sex: Male
  Weight: 69 kg

DRUGS (2)
  1. VYALEV [Suspect]
     Active Substance: FOSCARBIDOPA\FOSLEVODOPA
     Indication: Parkinson^s disease
     Route: 058
     Dates: start: 20250114, end: 20250311
  2. SINEMET [Concomitant]
     Active Substance: CARBIDOPA\LEVODOPA
     Indication: Parkinson^s disease
     Route: 065

REACTIONS (8)
  - Abdominal distension [Unknown]
  - Device issue [Unknown]
  - Abdominal tenderness [Unknown]
  - Feeling hot [Unknown]
  - Abdominal infection [Recovering/Resolving]
  - Catheter site swelling [Unknown]
  - Fatigue [Unknown]
  - Catheter site infection [Unknown]

NARRATIVE: CASE EVENT DATE: 20250101
